FAERS Safety Report 8112560-8 (Version None)
Quarter: 2012Q1

REPORT INFORMATION
  Report Type: 
  Country: None (occurrence: None)
  Receive Date: 20120203
  Receipt Date: 20120126
  Transmission Date: 20120608
  Serious: Yes (Hospitalization)
  Sender: FDA-Public Use
  Company Number: DE-ROCHE-1027552

PATIENT
  Age: 38 Year
  Sex: Female
  Weight: 72 kg

DRUGS (9)
  1. PANTOPRAZOLE [Concomitant]
     Indication: DYSPEPSIA
     Dates: start: 20110131
  2. AVASTIN [Suspect]
     Indication: RECTAL CANCER
     Dates: start: 20120118, end: 20120118
  3. FLUOROURACIL [Suspect]
     Indication: RECTAL CANCER METASTATIC
  4. MORPHINE SULFATE [Suspect]
     Indication: PRODUCT USED FOR UNKNOWN INDICATION
     Route: 062
  5. CITALOPRAM HYDROBROMIDE [Concomitant]
     Indication: DEPRESSION
     Dates: start: 20110131
  6. LEUCOVORIN CALCIUM [Suspect]
     Indication: RECTAL CANCER METASTATIC
     Dates: start: 20120118, end: 20120118
  7. LYRICA [Concomitant]
     Indication: DEPRESSION
     Dates: start: 20110130
  8. IRINOTECAN HYDROCHLORIDE [Suspect]
     Indication: RECTAL CANCER METASTATIC
     Dates: start: 20120118, end: 20120118
  9. MIRTAZAPINE [Concomitant]
     Indication: DEPRESSION
     Dates: start: 20110130

REACTIONS (8)
  - PAIN [None]
  - NAUSEA [None]
  - INFECTION [None]
  - PYREXIA [None]
  - GENERAL PHYSICAL HEALTH DETERIORATION [None]
  - DYSAESTHESIA [None]
  - DRUG WITHDRAWAL SYNDROME [None]
  - ANXIETY [None]
